FAERS Safety Report 23032056 (Version 2)
Quarter: 2023Q4

REPORT INFORMATION
  Report Type: Report from Study
  Country: CA (occurrence: None)
  Receive Date: 20231005
  Receipt Date: 20231204
  Transmission Date: 20240109
  Serious: Yes (Life-Threatening, Hospitalization)
  Sender: FDA-Public Use
  Company Number: 2023A208269

PATIENT
  Age: 28109 Day
  Sex: Female

DRUGS (5)
  1. TEZSPIRE [Suspect]
     Active Substance: TEZEPELUMAB-EKKO
     Indication: Asthma
     Route: 058
     Dates: start: 20230517, end: 20230814
  2. PREDNISONE [Concomitant]
     Active Substance: PREDNISONE
     Dosage: 15 MG DIE
  3. ZENHALE [Concomitant]
     Active Substance: FORMOTEROL FUMARATE\MOMETASONE FUROATE
     Dosage: 200 MCG 2 INH TID
  4. ALVESCO [Concomitant]
     Active Substance: CICLESONIDE
     Dosage: 250MCG 1 INH BID
  5. SPIRIVA RESPIMAT [Concomitant]
     Active Substance: TIOTROPIUM BROMIDE
     Dosage: 2.5 MCG 2 INH DIE

REACTIONS (5)
  - Palpitations [Unknown]
  - Dyspnoea [Unknown]
  - Lung disorder [Unknown]
  - Inappropriate schedule of product administration [Unknown]
  - Drug ineffective [Unknown]

NARRATIVE: CASE EVENT DATE: 20230814
